FAERS Safety Report 7319770-8 (Version None)
Quarter: 2011Q1

REPORT INFORMATION
  Report Type: 
  Country: None (occurrence: None)
  Receive Date: 20110228
  Receipt Date: 20101005
  Transmission Date: 20110831
  Serious: No
  Sender: FDA-Public Use
  Company Number: A0881495A

PATIENT
  Age: 21 Year
  Sex: Female
  Weight: 55.5 kg

DRUGS (5)
  1. VYVANSE [Concomitant]
     Indication: ATTENTION DEFICIT/HYPERACTIVITY DISORDER
     Route: 048
     Dates: start: 20090901
  2. TRAZODONE [Concomitant]
     Indication: SLEEP DISORDER
     Dosage: 100MG PER DAY
     Route: 048
     Dates: start: 19990101
  3. WELLBUTRIN XL [Concomitant]
     Dosage: 300MG PER DAY
     Route: 048
     Dates: start: 19990101
  4. LAMICTAL [Suspect]
     Dosage: 100MG PER DAY
     Route: 048
     Dates: start: 20090901, end: 20100914
  5. MIRENA [Concomitant]
     Dates: start: 19980101

REACTIONS (6)
  - RASH ERYTHEMATOUS [None]
  - RASH GENERALISED [None]
  - LIP BLISTER [None]
  - CHEILITIS [None]
  - RASH MACULAR [None]
  - RASH [None]
